FAERS Safety Report 16963898 (Version 1)
Quarter: 2019Q4

REPORT INFORMATION
  Report Type: Report from Study
  Country: HU (occurrence: HU)
  Receive Date: 20191026
  Receipt Date: 20191026
  Transmission Date: 20200122
  Serious: Yes (Hospitalization)
  Sender: FDA-Public Use
  Company Number: NVSC2019HU005381

PATIENT
  Age: 63 Year
  Sex: Male
  Weight: 128 kg

DRUGS (7)
  1. BLINDED PLACEBO [Suspect]
     Active Substance: INVESTIGATIONAL PRODUCT
     Indication: PSORIASIS
     Dosage: CODE NOT BROKEN
     Route: 058
     Dates: start: 20190411
  2. AUGMENTIN-DUO [Concomitant]
     Active Substance: AMOXICILLIN\CLAVULANATE POTASSIUM
     Indication: ERYSIPELAS
     Dosage: UNK
     Route: 065
     Dates: start: 20190916, end: 20190922
  3. BLINDED AIN457 [Suspect]
     Active Substance: SECUKINUMAB
     Indication: PSORIASIS
     Dosage: CODE NOT BROKEN
     Route: 058
     Dates: start: 20190411
  4. BLINDED AIN457 [Suspect]
     Active Substance: SECUKINUMAB
     Indication: PSORIASIS
     Dosage: CODE NOT BROKEN
     Route: 058
     Dates: start: 20190411
  5. BLINDED NO TREATMENT RECEIVED [Suspect]
     Active Substance: INVESTIGATIONAL PRODUCT
     Indication: PSORIASIS
     Dosage: CODE NOT BROKEN
     Route: 058
     Dates: start: 20190411
  6. KALIUM-R [Concomitant]
     Indication: PROPHYLAXIS
     Dosage: UNK
     Route: 065
     Dates: start: 20191009, end: 20191016
  7. QUAMATEL [Concomitant]
     Active Substance: FAMOTIDINE
     Indication: PROPHYLAXIS
     Dosage: UNK
     Route: 065
     Dates: start: 20191009, end: 20191016

REACTIONS (1)
  - Erysipelas [Not Recovered/Not Resolved]

NARRATIVE: CASE EVENT DATE: 20191004
